FAERS Safety Report 6879708-4 (Version None)
Quarter: 2010Q3

REPORT INFORMATION
  Report Type: 
  Country: None (occurrence: None)
  Receive Date: 20100728
  Receipt Date: 20100719
  Transmission Date: 20110219
  Serious: Yes (Other)
  Sender: FDA-Public Use
  Company Number: US-JNJFOC-20100504843

PATIENT
  Sex: Male

DRUGS (5)
  1. CONCERTA [Suspect]
     Indication: ATTENTION DEFICIT/HYPERACTIVITY DISORDER
     Route: 048
  2. CLARITIN [Concomitant]
     Route: 065
  3. ALBUTEROL [Concomitant]
     Indication: WHEEZING
     Dosage: 2 PUFFS AS NECESSARY FOR LIFETIME
     Route: 065
  4. ALBUTEROL [Concomitant]
     Indication: COUGH
     Dosage: 2 PUFFS AS NECESSARY FOR LIFETIME
     Route: 065
  5. PULMICORT [Concomitant]
     Indication: ASTHMA
     Route: 065

REACTIONS (1)
  - ASTHMA [None]
